FAERS Safety Report 7672329-5 (Version None)
Quarter: 2011Q3

REPORT INFORMATION
  Report Type: 
  Country: None (occurrence: None)
  Receive Date: 20110809
  Receipt Date: 20110805
  Transmission Date: 20111222
  Serious: Yes (Hospitalization, Disabling, Other)
  Sender: FDA-Public Use
  Company Number: US-PFIZER INC-2011118612

PATIENT
  Sex: Male

DRUGS (4)
  1. CHANTIX [Suspect]
     Dosage: 1 MG, CONTINUING MONTH PACK
     Route: 048
     Dates: start: 20091208, end: 20100202
  2. CHANTIX [Suspect]
     Indication: SMOKING CESSATION THERAPY
     Dosage: STARTING MONTH PACK
     Route: 048
     Dates: start: 20090409, end: 20090509
  3. CELEBREX [Concomitant]
     Indication: PAIN
     Dosage: UNK
     Dates: start: 20080101, end: 20100101
  4. SYNTHROID [Concomitant]
     Indication: HYPOTHYROIDISM
     Dosage: UNK
     Dates: start: 20090101

REACTIONS (3)
  - TONGUE BITING [None]
  - CONVULSION [None]
  - LOSS OF CONSCIOUSNESS [None]
